FAERS Safety Report 14347901 (Version 2)
Quarter: 2018Q2

REPORT INFORMATION
  Report Type: Spontaneous
  Country: US (occurrence: US)
  Receive Date: 20180103
  Receipt Date: 20180612
  Transmission Date: 20180711
  Serious: No
  Sender: FDA-Public Use
  Company Number: US-PFIZER INC-2017554683

PATIENT
  Age: 68 Year
  Sex: Female

DRUGS (2)
  1. DOCETAXEL. [Suspect]
     Active Substance: DOCETAXEL
     Dosage: UNK
     Dates: start: 20140605, end: 20140925
  2. DOCETAXEL SANDOZ [Suspect]
     Active Substance: DOCETAXEL
     Dosage: UNK
     Dates: start: 20140605, end: 20140925

REACTIONS (1)
  - Alopecia [Unknown]
